FAERS Safety Report 10205956 (Version 1)
Quarter: 2014Q2

REPORT INFORMATION
  Report Type: Spontaneous
  Country: JP (occurrence: JP)
  Receive Date: 20140530
  Receipt Date: 20140530
  Transmission Date: 20141212
  Serious: Yes (Hospitalization)
  Sender: FDA-Public Use
  Company Number: JP-BRISTOL-MYERS SQUIBB COMPANY-20823225

PATIENT
  Age: 50 Year
  Sex: Male

DRUGS (1)
  1. METGLUCO [Suspect]
     Indication: DIABETES MELLITUS
     Route: 048

REACTIONS (1)
  - Renal failure acute [Recovered/Resolved]
